FAERS Safety Report 23945531 (Version 2)
Quarter: 2024Q2

REPORT INFORMATION
  Report Type: Spontaneous
  Country: ES (occurrence: ES)
  Receive Date: 20240606
  Receipt Date: 20240610
  Transmission Date: 20240716
  Serious: Yes (Other)
  Sender: FDA-Public Use
  Company Number: ES-SEATTLE GENETICS-2024SGN05275

PATIENT
  Age: 56 Year
  Sex: Female

DRUGS (3)
  1. GEMCITABINE HYDROCHLORIDE [Suspect]
     Active Substance: GEMCITABINE HYDROCHLORIDE
     Indication: Cutaneous T-cell lymphoma
     Dosage: SIX CYCLES, 1000 MG/M2, WEEKLY FOR 3 WEEKS, FOLLOWED BY 1-WEEK REST
     Route: 042
  2. GEMCITABINE HYDROCHLORIDE [Suspect]
     Active Substance: GEMCITABINE HYDROCHLORIDE
     Dosage: LAST TWO CYCLES, 1000 MG/M2, WEEKLY FOR 2 WEEKS, FOLLOWED BY A 2-WEEK REST PERIOD
     Route: 042
  3. ADCETRIS [Suspect]
     Active Substance: BRENTUXIMAB VEDOTIN
     Indication: Cutaneous T-cell lymphoma
     Dosage: 0.5 ML PER LESION, 0.5 MG/ML, EVERY 3 WEEKS
     Route: 026

REACTIONS (4)
  - Neuropathy peripheral [Recovering/Resolving]
  - Injection site pain [Unknown]
  - Product use issue [Unknown]
  - Off label use [Unknown]
